FAERS Safety Report 21537521 (Version 1)
Quarter: 2022Q4

REPORT INFORMATION
  Report Type: Spontaneous
  Country: None (occurrence: US)
  Receive Date: 20221101
  Receipt Date: 20221101
  Transmission Date: 20230113
  Serious: No
  Sender: FDA-Public Use
  Company Number: US-Mission Pharmacal Company-2134377

PATIENT
  Age: 82 Year
  Sex: Male

DRUGS (2)
  1. THIOLA EC [Suspect]
     Active Substance: TIOPRONIN
     Indication: Nephrolithiasis
     Route: 048
     Dates: start: 20191102
  2. LATANOPROST [Concomitant]
     Active Substance: LATANOPROST

REACTIONS (1)
  - Fatigue [Unknown]
